FAERS Safety Report 15434821 (Version 1)
Quarter: 2018Q3

REPORT INFORMATION
  Report Type: Spontaneous
  Country: US (occurrence: US)
  Receive Date: 20180922
  Receipt Date: 20180922
  Transmission Date: 20181010
  Serious: No
  Sender: FDA-Public Use
  Company Number: None

PATIENT
  Age: 35 Year
  Sex: Female
  Weight: 67.5 kg

DRUGS (1)
  1. SCOPOLAMINE [Suspect]
     Active Substance: SCOPOLAMINE
     Indication: MOTION SICKNESS
     Dosage: ?          QUANTITY:1 DF DOSAGE FORM;?
     Route: 062
     Dates: start: 20180716, end: 20180719

REACTIONS (12)
  - Vertigo [None]
  - Abdominal distension [None]
  - Nausea [None]
  - Abdominal pain [None]
  - Flushing [None]
  - Diarrhoea [None]
  - Dry mouth [None]
  - Malaise [None]
  - Fatigue [None]
  - Decreased appetite [None]
  - Confusional state [None]
  - Muscular weakness [None]

NARRATIVE: CASE EVENT DATE: 20180720
